FAERS Safety Report 11821176 (Version 1)
Quarter: 2015Q4

REPORT INFORMATION
  Report Type: Spontaneous
  Country: US (occurrence: US)
  Receive Date: 20151210
  Receipt Date: 20151210
  Transmission Date: 20160305
  Serious: No
  Sender: FDA-Public Use
  Company Number: US-JNJFOC-20150809611

PATIENT
  Sex: Male

DRUGS (4)
  1. IMBRUVICA [Suspect]
     Active Substance: IBRUTINIB
     Indication: CHRONIC LYMPHOCYTIC LEUKAEMIA
     Route: 048
     Dates: start: 20150512
  2. ALLOPURINOL. [Concomitant]
     Active Substance: ALLOPURINOL
  3. DIAZEPAM. [Concomitant]
     Active Substance: DIAZEPAM
  4. OSTEO BI-FLEX [Concomitant]
     Active Substance: CHONDROITIN SULFATE A\GLUCOSAMINE

REACTIONS (8)
  - Arthralgia [Unknown]
  - Nausea [Unknown]
  - Headache [Unknown]
  - Night sweats [Unknown]
  - Fatigue [Unknown]
  - Tremor [Unknown]
  - Chills [Unknown]
  - Constipation [Unknown]

NARRATIVE: CASE EVENT DATE: 2015
